FAERS Safety Report 17891835 (Version 1)
Quarter: 2020Q2

REPORT INFORMATION
  Report Type: Report from Study
  Country: None (occurrence: MX)
  Receive Date: 20200613
  Receipt Date: 20200613
  Transmission Date: 20200714
  Serious: Yes (Hospitalization, Other)
  Sender: FDA-Public Use
  Company Number: MX-ABBVIE-20K-107-3442307-00

PATIENT
  Sex: Male
  Weight: 82 kg

DRUGS (1)
  1. HUMIRA [Suspect]
     Active Substance: ADALIMUMAB
     Indication: UVEITIS
     Route: 058

REACTIONS (3)
  - Mouth ulceration [Recovered/Resolved]
  - Intestinal ulcer [Not Recovered/Not Resolved]
  - Hospitalisation [Recovered/Resolved]
